FAERS Safety Report 12109781 (Version 1)
Quarter: 2016Q1

REPORT INFORMATION
  Report Type: Spontaneous
  Country: US (occurrence: None)
  Receive Date: 20160222
  Receipt Date: 20160222
  Transmission Date: 20160526
  Serious: Yes (Hospitalization)
  Sender: FDA-Public Use
  Company Number: None

PATIENT
  Age: 71 Year
  Sex: Female
  Weight: 65.77 kg

DRUGS (2)
  1. PREPOPIK [Suspect]
     Active Substance: ANHYDROUS CITRIC ACID\MAGNESIUM OXIDE\SODIUM PICOSULFATE
     Indication: BOWEL PREPARATION
     Dosage: SPLIT DOSE 4 HOURS
     Route: 048
  2. PREPOPIK [Concomitant]
     Active Substance: ANHYDROUS CITRIC ACID\MAGNESIUM OXIDE\SODIUM PICOSULFATE

REACTIONS (9)
  - Vomiting [None]
  - Balance disorder [None]
  - Headache [None]
  - Hyponatraemia [None]
  - Ileus [None]
  - Confusional state [None]
  - Nausea [None]
  - Transient global amnesia [None]
  - Hypokalaemia [None]

NARRATIVE: CASE EVENT DATE: 20160210
